FAERS Safety Report 23122636 (Version 1)
Quarter: 2023Q4

REPORT INFORMATION
  Report Type: Spontaneous
  Country: US (occurrence: US)
  Receive Date: 20231030
  Receipt Date: 20231030
  Transmission Date: 20240110
  Serious: No
  Sender: FDA-Public Use
  Company Number: US-UCBSA-2022067816

PATIENT
  Sex: Male

DRUGS (1)
  1. VIMPAT [Suspect]
     Active Substance: LACOSAMIDE
     Indication: Product used for unknown indication
     Dosage: 300 MILLIGRAM, 2X/DAY (BID)
     Dates: start: 20190901

REACTIONS (3)
  - Dizziness [Unknown]
  - Abdominal discomfort [Unknown]
  - Overdose [Unknown]
